FAERS Safety Report 7549870-9 (Version None)
Quarter: 2011Q2

REPORT INFORMATION
  Report Type: 
  Country: None (occurrence: None)
  Receive Date: 20110615
  Receipt Date: 20110606
  Transmission Date: 20111010
  Serious: Yes (Other)
  Sender: FDA-Public Use
  Company Number: US-ASTRAZENECA-2010SE53488

PATIENT
  Age: 75 Year
  Sex: Male
  Weight: 106.6 kg

DRUGS (2)
  1. SYMBICORT [Suspect]
     Indication: ASTHMA
     Dosage: 160/4.5 MCGS TWO INHALATIONS ONCE DAILY
     Route: 055
  2. SYMBICORT [Suspect]
     Dosage: 160/4.5 MCGS BID
     Route: 055
     Dates: start: 20090101

REACTIONS (3)
  - DRY MOUTH [None]
  - INAPPROPRIATE SCHEDULE OF DRUG ADMINISTRATION [None]
  - DYSPNOEA [None]
